FAERS Safety Report 4370939-4 (Version None)
Quarter: 2004Q2

REPORT INFORMATION
  Report Type: 
  Country: None (occurrence: None)
  Receive Date: 20040603
  Receipt Date: 20040603
  Transmission Date: 20050107
  Serious: Yes (Hospitalization)
  Sender: FDA-Public Use
  Company Number: None

PATIENT
  Age: 29 Year
  Sex: Female
  Weight: 63.9572 kg

DRUGS (2)
  1. INTERFERON ALPHA-2B [Suspect]
     Indication: METASTATIC MALIGNANT MELANOMA
     Dosage: 10 MILLION UNITS PER M2/DAY SUBCUTANEOUS
     Route: 058
     Dates: start: 20040211, end: 20040526
  2. LOW-ESTROGEN BIRTH CONTROL [Concomitant]

REACTIONS (5)
  - BETA HAEMOLYTIC STREPTOCOCCAL INFECTION [None]
  - CELLULITIS [None]
  - CHILLS [None]
  - NAUSEA [None]
  - PYREXIA [None]
